FAERS Safety Report 6539185-X (Version None)
Quarter: 2010Q1

REPORT INFORMATION
  Report Type: 
  Country: None (occurrence: None)
  Receive Date: 20100115
  Receipt Date: 20091103
  Transmission Date: 20100710
  Serious: Yes (Hospitalization, Other)
  Sender: FDA-Public Use
  Company Number: RO-SANOFI-AVENTIS-2009SA010672

PATIENT
  Age: 27 Month
  Sex: Female

DRUGS (9)
  1. RIFAMPICIN [Suspect]
     Indication: TUBERCULOSIS
  2. ISONIAZID [Suspect]
     Indication: TUBERCULOSIS
     Route: 065
  3. MEROPENEM [Concomitant]
     Indication: MENINGITIS
     Route: 065
  4. CONVULEX ^GEROT^ [Concomitant]
     Route: 065
  5. LAMOTRIGINE [Concomitant]
     Route: 065
  6. ENCEPHABOL [Concomitant]
     Route: 065
  7. CEREBROLYSIN [Concomitant]
     Route: 065
  8. DEXAMETHASONE TAB [Concomitant]
     Route: 065
  9. VITAMIN B COMPLEX CAP [Concomitant]
     Indication: VITAMIN SUPPLEMENTATION
     Route: 065

REACTIONS (11)
  - ACUTE TONSILLITIS [None]
  - COMA [None]
  - EPILEPSY [None]
  - FACIAL PALSY [None]
  - HEMIPARESIS [None]
  - HEPATITIS TOXIC [None]
  - HYDROCEPHALUS [None]
  - INTERSTITIAL LUNG DISEASE [None]
  - MENINGITIS [None]
  - ORAL CANDIDIASIS [None]
  - PARESIS CRANIAL NERVE [None]
